FAERS Safety Report 17149571 (Version 6)
Quarter: 2020Q2

REPORT INFORMATION
  Report Type: Report from Study
  Country: US (occurrence: US)
  Receive Date: 20191213
  Receipt Date: 20200519
  Transmission Date: 20200713
  Serious: Yes (Death, Hospitalization, Other)
  Sender: FDA-Public Use
  Company Number: US-ACTELION-A-US2018-179534

PATIENT
  Age: 75 Year
  Sex: Female
  Weight: 46.26 kg

DRUGS (7)
  1. LETAIRIS [Concomitant]
     Active Substance: AMBRISENTAN
  2. METOPROLOL. [Concomitant]
     Active Substance: METOPROLOL
     Indication: HEART RATE
  3. VELETRI [Suspect]
     Active Substance: EPOPROSTENOL
     Dosage: 8 NG/KG, PER MIN
     Route: 042
  4. VELETRI [Suspect]
     Active Substance: EPOPROSTENOL
     Dosage: 10 NG/KG, PER MIN
     Route: 042
  5. OPSUMIT [Concomitant]
     Active Substance: MACITENTAN
     Route: 048
  6. VELETRI [Suspect]
     Active Substance: EPOPROSTENOL
     Indication: PULMONARY ARTERIAL HYPERTENSION
     Dosage: 10 NG/KG, PER MIN
     Route: 042
  7. ADEMPAS [Concomitant]
     Active Substance: RIOCIGUAT
     Dosage: UNK

REACTIONS (23)
  - Dizziness [Unknown]
  - Catheter site pruritus [Unknown]
  - Catheter site pain [Unknown]
  - Decreased appetite [Recovered/Resolved]
  - Renal failure [Unknown]
  - Aspiration pleural cavity [Unknown]
  - Catheter site irritation [Unknown]
  - Flatulence [Unknown]
  - Nausea [Unknown]
  - Hospitalisation [Unknown]
  - Dyspnoea [Recovering/Resolving]
  - Headache [Unknown]
  - Death [Fatal]
  - Intestinal obstruction [Unknown]
  - Vomiting [Unknown]
  - Diarrhoea [Unknown]
  - Vision blurred [Unknown]
  - Weight decreased [Unknown]
  - Palpitations [Unknown]
  - Fluid retention [Unknown]
  - Hypotension [Unknown]
  - Catheter site erythema [Unknown]
  - Dyspnoea exertional [Unknown]

NARRATIVE: CASE EVENT DATE: 20181009
